FAERS Safety Report 5004465-6 (Version None)
Quarter: 2006Q2

REPORT INFORMATION
  Report Type: 
  Country: None (occurrence: None)
  Receive Date: 20060516
  Receipt Date: 20060516
  Transmission Date: 20061013
  Serious: Yes (Hospitalization)
  Sender: FDA-Public Use
  Company Number: None

PATIENT
  Age: 52 Year
  Sex: Female
  Weight: 46.2669 kg

DRUGS (7)
  1. LAMICTAL [Suspect]
     Dosage: 25MG ONE PO BID SEE IMAGE
     Route: 048
     Dates: start: 20060405
  2. LAMICTAL [Suspect]
     Dosage: 25MG ONE PO BID SEE IMAGE
     Route: 048
     Dates: start: 20060419
  3. LEXAPRO [Concomitant]
  4. GEODON [Concomitant]
  5. DESYREL [Concomitant]
  6. RESTORIL [Concomitant]
  7. KLONOPIN [Concomitant]

REACTIONS (4)
  - COUGH [None]
  - LACRIMATION INCREASED [None]
  - RHINORRHOEA [None]
  - STEVENS-JOHNSON SYNDROME [None]
